FAERS Safety Report 8325610-0 (Version None)
Quarter: 2012Q2

REPORT INFORMATION
  Report Type: 
  Country: None (occurrence: None)
  Receive Date: 20120501
  Receipt Date: 20100513
  Transmission Date: 20120825
  Serious: No
  Sender: FDA-Public Use
  Company Number: US-TEVA-2010002736

PATIENT
  Sex: Female
  Weight: 108.96 kg

DRUGS (6)
  1. NAPROXEN (ALEVE) [Concomitant]
     Dates: start: 20091201
  2. DIOVAN [Concomitant]
     Dates: start: 20100511
  3. LISINOPRIL [Concomitant]
     Dates: start: 20100201
  4. CYMBALTA [Concomitant]
  5. NUVIGIL [Suspect]
     Indication: SLEEP APNOEA SYNDROME
     Dosage: 150 MILLIGRAM;
     Route: 048
     Dates: start: 20100413
  6. LEVOTHYROXINE SODIUM [Concomitant]
     Dates: start: 20100101

REACTIONS (2)
  - DRUG INEFFECTIVE [None]
  - DISTURBANCE IN ATTENTION [None]
